FAERS Safety Report 10187974 (Version 1)
Quarter: 2014Q2

REPORT INFORMATION
  Report Type: Spontaneous
  Country: US (occurrence: US)
  Receive Date: 20140522
  Receipt Date: 20140522
  Transmission Date: 20141212
  Serious: No
  Sender: FDA-Public Use
  Company Number: US-SA-2013SA105294

PATIENT
  Age: 65 Year
  Sex: Male

DRUGS (5)
  1. LANTUS SOLOSTAR [Suspect]
     Indication: TYPE 2 DIABETES MELLITUS
     Route: 051
     Dates: start: 201301
  2. LANTUS SOLOSTAR [Suspect]
     Indication: TYPE 2 DIABETES MELLITUS
     Route: 051
  3. METFORMIN [Suspect]
     Indication: TYPE 2 DIABETES MELLITUS
     Route: 065
  4. GLYBURIDE [Suspect]
     Indication: TYPE 2 DIABETES MELLITUS
     Route: 065
  5. SOLOSTAR [Concomitant]

REACTIONS (7)
  - Bone pain [Unknown]
  - Neuropathy peripheral [Unknown]
  - Skin ulcer [Unknown]
  - Pollakiuria [Unknown]
  - Renal pain [Unknown]
  - Blood glucose increased [Unknown]
  - Incorrect product storage [Unknown]
